FAERS Safety Report 8520162-4 (Version None)
Quarter: 2012Q3

REPORT INFORMATION
  Report Type: 
  Country: None (occurrence: None)
  Receive Date: 20120719
  Receipt Date: 20120705
  Transmission Date: 20120928
  Serious: Yes (Other)
  Sender: FDA-Public Use
  Company Number: PL-JNJFOC-20120707123

PATIENT
  Age: 42 Year
  Sex: Male

DRUGS (3)
  1. CYCLOSPORINE [Suspect]
     Indication: PUSTULAR PSORIASIS
     Dosage: 3 MG/KG/DAY
     Route: 065
     Dates: start: 20100201
  2. CYCLOSPORINE [Suspect]
     Dosage: DOSE INCREASED
     Route: 065
  3. USTEKINUMAB [Suspect]
     Indication: PUSTULAR PSORIASIS
     Dosage: DEVELOPED ADVERSE EVENT AFTER 1.5 YEARS
     Route: 058
     Dates: start: 20100301

REACTIONS (2)
  - PUSTULAR PSORIASIS [None]
  - ARTHRALGIA [None]
